FAERS Safety Report 8921707 (Version 1)
Quarter: 2012Q4

REPORT INFORMATION
  Report Type: 
  Country: JP (occurrence: JP)
  Receive Date: 20121121
  Receipt Date: 20121121
  Transmission Date: 20130627
  Serious: Yes (Life-Threatening, Hospitalization, Other)
  Sender: FDA-Public Use
  Company Number: JP-ROCHE-224714

PATIENT
  Age: 51 Year
  Sex: Female
  Weight: 50 kg

DRUGS (1)
  1. ROCEPHIN [Suspect]
     Indication: NASOPHARYNGITIS
     Dosage: THE PATIENT RECEIVED  ONLY ONE THIRD OF THE TOTAL DOSE OF 1 GRAM.
     Route: 041
     Dates: start: 19991227, end: 19991227

REACTIONS (6)
  - Anaphylactic shock [Recovering/Resolving]
  - Hypertension [Unknown]
  - Cardiomegaly [Recovering/Resolving]
  - Liver injury [Recovering/Resolving]
  - Amylase increased [Unknown]
  - Weight decreased [Unknown]
